FAERS Safety Report 7568626-4 (Version None)
Quarter: 2011Q2

REPORT INFORMATION
  Report Type: 
  Country: None (occurrence: None)
  Receive Date: 20110623
  Receipt Date: 20110610
  Transmission Date: 20111010
  Serious: Yes (Disabling, Other)
  Sender: FDA-Public Use
  Company Number: PHHY2011RO53036

PATIENT
  Age: 53 Year
  Sex: Female

DRUGS (6)
  1. RALOXIFENE HCL [Suspect]
     Indication: HEPATO-LENTICULAR DEGENERATION
     Dosage: 60 MG EVERY DAY
  2. PENICILLAMINE [Suspect]
     Indication: HEPATO-LENTICULAR DEGENERATION
     Dosage: 0.25 G FOUR TIMES A DAY
  3. FOLIC ACID [Suspect]
     Indication: HEPATO-LENTICULAR DEGENERATION
     Dosage: 5 MG EVERY DAY
  4. ZINC [Suspect]
     Indication: HEPATO-LENTICULAR DEGENERATION
     Dosage: 220 MG EVERY DAY
  5. IMIPRAMINE HYDROCHLORIDE [Suspect]
     Indication: HEPATO-LENTICULAR DEGENERATION
     Dosage: 25 MG EVERY DAY
  6. VITAMIN B6 [Suspect]
     Indication: HEPATO-LENTICULAR DEGENERATION
     Dosage: 100 MG EVERY DAY

REACTIONS (20)
  - NERVOUS SYSTEM DISORDER [None]
  - SKIN HYPERTROPHY [None]
  - ORAL CANDIDIASIS [None]
  - GINGIVAL RECESSION [None]
  - CANDIDIASIS [None]
  - DYSARTHRIA [None]
  - OSTEOARTHRITIS [None]
  - CHEILITIS [None]
  - MUCOSAL INFLAMMATION [None]
  - PARKINSONISM [None]
  - JOINT CONTRACTURE [None]
  - GINGIVAL SWELLING [None]
  - WHEELCHAIR USER [None]
  - ARTHRITIS [None]
  - ARTHRALGIA [None]
  - ATAXIA [None]
  - DRUG INTOLERANCE [None]
  - RASH ERYTHEMATOUS [None]
  - GINGIVAL BLEEDING [None]
  - CARPAL TUNNEL SYNDROME [None]
